FAERS Safety Report 22150951 (Version 1)
Quarter: 2023Q1

REPORT INFORMATION
  Report Type: Spontaneous
  Country: FR (occurrence: FR)
  Receive Date: 20230329
  Receipt Date: 20230329
  Transmission Date: 20230418
  Serious: Yes (Life-Threatening, Hospitalization)
  Sender: FDA-Public Use
  Company Number: None

PATIENT
  Age: 13 Year
  Sex: Female
  Weight: 61 kg

DRUGS (3)
  1. FLURBIPROFEN [Suspect]
     Active Substance: FLURBIPROFEN
     Indication: Dysmenorrhoea
     Dosage: 300 MILLIGRAM DAILY;
     Route: 048
     Dates: start: 20220923, end: 20220923
  2. DOLIPRANE [Suspect]
     Active Substance: ACETAMINOPHEN
     Indication: Dysmenorrhoea
     Dosage: 2 GRAM DAILY;
     Route: 048
     Dates: start: 20220923, end: 20220923
  3. ACETAMINOPHEN\CODEINE PHOSPHATE [Suspect]
     Active Substance: ACETAMINOPHEN\CODEINE PHOSPHATE
     Indication: Dysmenorrhoea
     Dosage: 600 MG/50 MG, COMPRIME
     Route: 048
     Dates: start: 20220923, end: 20220923

REACTIONS (3)
  - Somnolence [Recovered/Resolved]
  - Hepatitis acute [Recovering/Resolving]
  - Accidental overdose [Recovered/Resolved]

NARRATIVE: CASE EVENT DATE: 20220923
